FAERS Safety Report 6956272-2 (Version None)
Quarter: 2010Q3

REPORT INFORMATION
  Report Type: 
  Country: None (occurrence: None)
  Receive Date: 20100830
  Receipt Date: 20100820
  Transmission Date: 20110219
  Serious: Yes (Death, Hospitalization)
  Sender: FDA-Public Use
  Company Number: DE-ABBOTT-10P-062-0647264-00

PATIENT
  Age: 86 Year
  Sex: Female
  Weight: 69.5 kg

DRUGS (18)
  1. ZEMPLAR [Suspect]
     Indication: HYPERPARATHYROIDISM
     Route: 042
     Dates: start: 20090429
  2. RETACRIT [Concomitant]
     Indication: PRODUCT USED FOR UNKNOWN INDICATION
     Route: 042
     Dates: start: 20090316, end: 20090518
  3. FERRLECIT [Concomitant]
     Indication: IRON DEFICIENCY
     Route: 042
     Dates: start: 20080813
  4. ASPIRIN [Concomitant]
     Indication: PLATELET AGGREGATION INHIBITION
     Route: 048
     Dates: start: 20080326
  5. CARENAL [Concomitant]
     Indication: MINERAL SUPPLEMENTATION
     Route: 048
     Dates: start: 20070330
  6. CARMEN [Concomitant]
     Indication: HYPERTENSION
     Route: 048
     Dates: start: 20071109
  7. LISINOPRIL [Concomitant]
     Indication: HYPERTENSION
     Route: 048
     Dates: start: 20070606
  8. METOPROLOL TARTRATE [Concomitant]
     Indication: HYPERTENSION
     Route: 048
     Dates: start: 20060413
  9. SIMVASTATIN [Concomitant]
     Indication: HYPERCHOLESTEROLAEMIA
     Route: 048
     Dates: start: 20090219
  10. ZINC [Concomitant]
     Indication: ZINC DEFICIENCY
     Route: 048
     Dates: start: 20061110
  11. DICLOFENAC [Concomitant]
     Indication: ANTIINFLAMMATORY THERAPY
     Route: 048
     Dates: start: 20070801
  12. METAMIZOL [Concomitant]
     Indication: ANALGESIC THERAPY
     Route: 048
     Dates: start: 20080806
  13. PRAMIPEXOLE DIHYDROCHLORIDE [Concomitant]
     Indication: PARKINSON'S DISEASE
     Route: 048
     Dates: start: 20080825
  14. TRAMAL [Concomitant]
     Indication: ANALGESIC THERAPY
     Route: 048
     Dates: start: 20090209
  15. OMEPRAZOLE [Concomitant]
     Indication: GASTROINTESTINAL MUCOSAL DISORDER
     Route: 048
     Dates: start: 20090223
  16. OMEPRAZOLE [Concomitant]
     Indication: PROPHYLAXIS
  17. CALCET [Concomitant]
     Indication: HYPERPHOSPHATAEMIA
     Route: 048
     Dates: start: 20090223
  18. DECOSTRIOL [Concomitant]
     Indication: RENAL OSTEODYSTROPHY
     Route: 048
     Dates: start: 20070528, end: 20090427

REACTIONS (2)
  - COLITIS [None]
  - DEATH [None]
